FAERS Safety Report 9207492 (Version 1)
Quarter: 2013Q2

REPORT INFORMATION
  Report Type: Spontaneous
  Country: US (occurrence: None)
  Receive Date: 20130402
  Receipt Date: 20130402
  Transmission Date: 20140414
  Serious: Yes (Other)
  Sender: FDA-Public Use
  Company Number: None

PATIENT
  Sex: Male
  Weight: 112.1 kg

DRUGS (1)
  1. VANCOMYCIN [Suspect]
     Indication: NEUTROPENIA
     Dosage: Q12H
     Route: 042
     Dates: start: 20130105, end: 20130205

REACTIONS (2)
  - Renal failure [None]
  - Continuous haemodiafiltration [None]
